FAERS Safety Report 19557482 (Version 1)
Quarter: 2021Q3

REPORT INFORMATION
  Report Type: Spontaneous
  Country: US (occurrence: US)
  Receive Date: 20210715
  Receipt Date: 20210715
  Transmission Date: 20211014
  Serious: No
  Sender: FDA-Public Use
  Company Number: US-GLAXOSMITHKLINE-US2021AMR151344

PATIENT
  Sex: Female

DRUGS (1)
  1. BENLYSTA [Suspect]
     Active Substance: BELIMUMAB
     Indication: LUPUS NEPHRITIS
     Dosage: 200 MG, AUTOINJECTORS FOR 4 WEEKS THEN 200MG AUTOINJECTOR FOR 1 WEEK
     Route: 058
     Dates: end: 20210624

REACTIONS (2)
  - Aphasia [Unknown]
  - Disturbance in attention [Unknown]
